FAERS Safety Report 8123382-6 (Version None)
Quarter: 2012Q1

REPORT INFORMATION
  Report Type: 
  Country: None (occurrence: None)
  Receive Date: 20120208
  Receipt Date: 20120207
  Transmission Date: 20120608
  Serious: No
  Sender: FDA-Public Use
  Company Number: US-PFIZER INC-2012033722

PATIENT
  Sex: Female
  Weight: 71.7 kg

DRUGS (4)
  1. CHANTIX [Suspect]
     Dosage: UNK
     Dates: start: 20061101, end: 20070201
  2. LIPITOR [Concomitant]
     Dosage: UNK
  3. CHANTIX [Suspect]
     Indication: SMOKING CESSATION THERAPY
     Dosage: 0.5 MG, 1X/DAY
     Route: 048
     Dates: start: 20061101, end: 20061101
  4. EXFORGE [Concomitant]
     Dosage: 10/160 MG, UNK

REACTIONS (1)
  - BODY HEIGHT DECREASED [None]
